FAERS Safety Report 23365968 (Version 4)
Quarter: 2024Q1

REPORT INFORMATION
  Report Type: Report from Study
  Country: NZ (occurrence: NZ)
  Receive Date: 20240104
  Receipt Date: 20240328
  Transmission Date: 20240410
  Serious: Yes (Hospitalization)
  Sender: FDA-Public Use
  Company Number: NZ-TEVA-VS-3139518

PATIENT
  Age: 83 Year
  Sex: Female
  Weight: 51.5 kg

DRUGS (16)
  1. LISINOPRIL [Suspect]
     Active Substance: LISINOPRIL
     Indication: Hypertension
     Route: 065
     Dates: start: 20230719, end: 20231206
  2. CHLORAMPHENICOL [Concomitant]
     Active Substance: CHLORAMPHENICOL
     Dates: start: 20231110
  3. DICLOFENAC [Concomitant]
     Active Substance: DICLOFENAC
     Dates: start: 20231124
  4. VITAMIN B12 [Concomitant]
     Active Substance: CYANOCOBALAMIN
     Dates: start: 20231204
  5. DOCUSATE SODIUM\SENNOSIDES A AND B [Concomitant]
     Active Substance: DOCUSATE SODIUM\SENNOSIDES A AND B
     Dates: start: 20231206
  6. ACETAMINOPHEN [Concomitant]
     Active Substance: ACETAMINOPHEN
     Dates: start: 20231206
  7. COD LIVER OIL [Concomitant]
     Active Substance: COD LIVER OIL
     Dates: start: 2013
  8. MAGNESIUM [Concomitant]
     Active Substance: MAGNESIUM
     Dates: start: 2013
  9. ASPIRIN [Concomitant]
     Active Substance: ASPIRIN
     Dates: start: 20230116
  10. ATORVASTATIN [Concomitant]
     Active Substance: ATORVASTATIN
     Dates: start: 20230116
  11. CLOPIDOGREL [Concomitant]
     Active Substance: CLOPIDOGREL BISULFATE
     Dates: start: 20230116
  12. METOPROLOL [Concomitant]
     Active Substance: METOPROLOL
     Dates: start: 20230116, end: 20231206
  13. OMEPRAZOLE [Concomitant]
     Active Substance: OMEPRAZOLE
     Dates: start: 20230116
  14. CARBOMER [Concomitant]
     Active Substance: CARBOMER
     Dates: start: 20231110
  15. AMLODIPINE BESYLATE [Suspect]
     Active Substance: AMLODIPINE BESYLATE
     Indication: Hypertension
     Route: 065
     Dates: start: 20231019, end: 20231207
  16. DILTIAZEM [Concomitant]
     Active Substance: DILTIAZEM

REACTIONS (1)
  - Orthostatic hypotension [Recovered/Resolved]

NARRATIVE: CASE EVENT DATE: 20231206
